APPROVED DRUG PRODUCT: AMPICILLIN TRIHYDRATE
Active Ingredient: AMPICILLIN/AMPICILLIN TRIHYDRATE
Strength: EQ 500MG BASE
Dosage Form/Route: CAPSULE;ORAL
Application: A060765 | Product #002
Applicant: IVAX PHARMACEUTICALS INC SUB TEVA PHARMACEUTICALS USA
Approved: Approved Prior to Jan 1, 1982 | RLD: No | RS: No | Type: DISCN